FAERS Safety Report 5371020-8 (Version None)
Quarter: 2007Q2

REPORT INFORMATION
  Report Type: 
  Country: None (occurrence: None)
  Receive Date: 20070626
  Receipt Date: 20070615
  Transmission Date: 20071010
  Serious: Yes (Hospitalization)
  Sender: FDA-Public Use
  Company Number: US-PFIZER INC-2007048757

PATIENT
  Age: 78 Year
  Sex: Female
  Weight: 76 kg

DRUGS (2)
  1. SUTENT [Suspect]
     Indication: CERVIX CARCINOMA
     Route: 048
  2. INNOHEP [Suspect]
     Indication: ILL-DEFINED DISORDER
     Route: 058

REACTIONS (2)
  - INTERNATIONAL NORMALISED RATIO INCREASED [None]
  - METRORRHAGIA [None]
